FAERS Safety Report 7295115-7 (Version None)
Quarter: 2011Q1

REPORT INFORMATION
  Report Type: 
  Country: None (occurrence: None)
  Receive Date: 20110216
  Receipt Date: 20110209
  Transmission Date: 20110831
  Serious: Yes (Other)
  Sender: FDA-Public Use
  Company Number: FR-JNJFOC-20110203351

PATIENT
  Age: 12 Year
  Sex: Female
  Weight: 35 kg

DRUGS (4)
  1. POLARAMINE NOS [Concomitant]
     Indication: PREMEDICATION
  2. REMICADE [Suspect]
     Route: 042
  3. REMICADE [Suspect]
     Indication: CROHN'S DISEASE
     Route: 042
  4. REMICADE [Suspect]
     Dosage: DILUTION IN 200 ML ADMINISTERED DURING 2 HOURS IE 100 ML/HOUR
     Route: 042

REACTIONS (8)
  - CYANOSIS [None]
  - FACE OEDEMA [None]
  - HYPOXIA [None]
  - DIZZINESS [None]
  - NAUSEA [None]
  - INFUSION RELATED REACTION [None]
  - ANGIOEDEMA [None]
  - LARYNGEAL DYSPNOEA [None]
